FAERS Safety Report 19714727 (Version 2)
Quarter: 2021Q3

REPORT INFORMATION
  Report Type: Spontaneous
  Country: US (occurrence: US)
  Receive Date: 20210818
  Receipt Date: 20210908
  Transmission Date: 20211014
  Serious: No
  Sender: FDA-Public Use
  Company Number: US-BAUSCH-BL-2021-025754

PATIENT
  Age: 75 Year
  Sex: Male

DRUGS (2)
  1. LUMIGAN [Concomitant]
     Active Substance: BIMATOPROST
     Indication: PRODUCT USED FOR UNKNOWN INDICATION
  2. JUBLIA [Suspect]
     Active Substance: EFINACONAZOLE
     Indication: FUNGAL INFECTION
     Route: 065

REACTIONS (4)
  - Accidental exposure to product [Unknown]
  - Wrong product administered [Unknown]
  - Instillation site erythema [Recovering/Resolving]
  - Instillation site pain [Unknown]

NARRATIVE: CASE EVENT DATE: 20210718
